FAERS Safety Report 23440953 (Version 4)
Quarter: 2024Q1

REPORT INFORMATION
  Report Type: Spontaneous
  Country: CH (occurrence: CH)
  Receive Date: 20240125
  Receipt Date: 20240311
  Transmission Date: 20240410
  Serious: No
  Sender: FDA-Public Use
  Company Number: CH-UCBSA-2024003518

PATIENT
  Age: 73 Year
  Sex: Male

DRUGS (2)
  1. NEUPRO [Suspect]
     Active Substance: ROTIGOTINE
     Indication: Restless legs syndrome
     Dosage: 2 MILLIGRAM, ONCE DAILY (QD)
     Route: 062
     Dates: start: 20240111
  2. NEUPRO [Suspect]
     Active Substance: ROTIGOTINE
     Dosage: 1 MILLIGRAM, ONCE DAILY (QD)/14 DAYS
     Route: 062
     Dates: start: 20231216, end: 20240110

REACTIONS (1)
  - Product adhesion issue [Unknown]

NARRATIVE: CASE EVENT DATE: 20240111
